FAERS Safety Report 8251607-5 (Version None)
Quarter: 2012Q1

REPORT INFORMATION
  Report Type: 
  Country: None (occurrence: None)
  Receive Date: 20120328
  Receipt Date: 20120315
  Transmission Date: 20120608
  Serious: Yes (Hospitalization, Disabling, Other)
  Sender: FDA-Public Use
  Company Number: 2012MA003472

PATIENT
  Sex: Female
  Weight: 52.1637 kg

DRUGS (6)
  1. AMBIEN [Concomitant]
  2. CRYSTALLINE VIT B12 INJ [Concomitant]
  3. METOCLOPRAMIDE [Suspect]
     Indication: NAUSEA
     Dosage: 10 MG;BID;PO
     Route: 048
     Dates: start: 20050510, end: 20090820
  4. CLONIDINE [Concomitant]
  5. ALDACTONE [Concomitant]
  6. CIPROFLOXACIN HCL [Concomitant]

REACTIONS (65)
  - DYSPHONIA [None]
  - ABDOMINAL PAIN [None]
  - INSOMNIA [None]
  - CATARACT [None]
  - TREMOR [None]
  - GLOSSODYNIA [None]
  - POOR DENTAL CONDITION [None]
  - VITAMIN B12 DEFICIENCY [None]
  - DYSPHAGIA [None]
  - GLOSSITIS [None]
  - IRRITABLE BOWEL SYNDROME [None]
  - PAIN [None]
  - ACTIVITIES OF DAILY LIVING IMPAIRED [None]
  - GASTROINTESTINAL DISORDER [None]
  - AGGRESSION [None]
  - ANAEMIA [None]
  - REFUSAL OF TREATMENT BY PATIENT [None]
  - DYSKINESIA [None]
  - CORONARY ARTERY DISEASE [None]
  - ANXIETY [None]
  - HYPERTENSION [None]
  - NERVOUSNESS [None]
  - ASTHENIA [None]
  - HYPOXIA [None]
  - EXCESSIVE EYE BLINKING [None]
  - TONGUE DISORDER [None]
  - BALANCE DISORDER [None]
  - FALL [None]
  - BLOOD SODIUM DECREASED [None]
  - GASTROOESOPHAGEAL REFLUX DISEASE [None]
  - PERIPHERAL VASCULAR DISORDER [None]
  - OROPHARYNGEAL PAIN [None]
  - AGITATION [None]
  - LETHARGY [None]
  - AMNESIA [None]
  - CONSTIPATION [None]
  - ARTHRALGIA [None]
  - EXTRAPYRAMIDAL DISORDER [None]
  - TIC [None]
  - DEMENTIA [None]
  - IMPAIRED HEALING [None]
  - CONFUSIONAL STATE [None]
  - ORAL PAIN [None]
  - SPEECH DISORDER [None]
  - ARTHRITIS [None]
  - INTESTINAL ISCHAEMIA [None]
  - DROOLING [None]
  - FAECAL INCONTINENCE [None]
  - PNEUMONIA [None]
  - TARDIVE DYSKINESIA [None]
  - DECREASED APPETITE [None]
  - BONE PAIN [None]
  - THORACIC VERTEBRAL FRACTURE [None]
  - BACK PAIN [None]
  - DEPRESSION [None]
  - POLYP [None]
  - NAUSEA [None]
  - DYSPNOEA [None]
  - OSTEOPOROSIS [None]
  - DIARRHOEA [None]
  - HYPERCHOLESTEROLAEMIA [None]
  - ANAEMIA VITAMIN B12 DEFICIENCY [None]
  - PAIN IN JAW [None]
  - URINARY INCONTINENCE [None]
  - WEIGHT DECREASED [None]
